FAERS Safety Report 6595147-8 (Version None)
Quarter: 2010Q1

REPORT INFORMATION
  Report Type: 
  Country: None (occurrence: None)
  Receive Date: 20100212
  Receipt Date: 20100126
  Transmission Date: 20100710
  Serious: Yes (Hospitalization, Other)
  Sender: FDA-Public Use
  Company Number: THQ2006A00440

PATIENT
  Age: 65 Year
  Sex: Female

DRUGS (6)
  1. LANSOPRAZOLE [Suspect]
     Indication: HELICOBACTER INFECTION
     Dates: start: 19970101, end: 19970101
  2. AZATHIOPRINE [Concomitant]
  3. CLARITHROMYCIN [Concomitant]
  4. CO-PROXAMOL (PARACETAMOL, DEXTROPROPOXYPHENE HYDROCHLORIDE) [Concomitant]
  5. DEXTROPROPOXYPHENE [Concomitant]
  6. METRONIDAZOLE [Concomitant]

REACTIONS (16)
  - ACTIVATED PARTIAL THROMBOPLASTIN TIME PROLONGED [None]
  - AGRANULOCYTOSIS [None]
  - DECREASED APPETITE [None]
  - DRY MOUTH [None]
  - DYSPHAGIA [None]
  - HAEMOGLOBIN DECREASED [None]
  - INTERNATIONAL NORMALISED RATIO INCREASED [None]
  - MALAISE [None]
  - OROPHARYNGEAL CANDIDIASIS [None]
  - PANCYTOPENIA [None]
  - PHARYNGITIS [None]
  - PLATELET COUNT DECREASED [None]
  - PYREXIA [None]
  - URINARY TRACT INFECTION [None]
  - WEIGHT DECREASED [None]
  - WHITE BLOOD CELL COUNT DECREASED [None]
